FAERS Safety Report 9018130 (Version 1)
Quarter: 2013Q1

REPORT INFORMATION
  Report Type: Spontaneous
  Country: US (occurrence: None)
  Receive Date: 20130110
  Receipt Date: 20130110
  Transmission Date: 20140127
  Serious: Yes (Hospitalization)
  Sender: FDA-Public Use
  Company Number: None

PATIENT
  Age: 59 Year
  Sex: Male

DRUGS (2)
  1. TRAZADONE [Suspect]
     Dates: start: 20101216, end: 20110523
  2. HALOPERIDOL [Suspect]
     Route: 030
     Dates: start: 201003, end: 20110630

REACTIONS (7)
  - Leukocytosis [None]
  - Hepatitis [None]
  - Hepatic fibrosis [None]
  - Hepatic neoplasm [None]
  - Splenomegaly [None]
  - Hepatic atrophy [None]
  - Hepatitis toxic [None]
